FAERS Safety Report 13621745 (Version 1)
Quarter: 2017Q2

REPORT INFORMATION
  Report Type: Spontaneous
  Country: US (occurrence: US)
  Receive Date: 20170607
  Receipt Date: 20170607
  Transmission Date: 20170830
  Serious: No
  Sender: FDA-Public Use
  Company Number: US-ROCHE-1791868

PATIENT
  Sex: Female

DRUGS (6)
  1. KLONOPIN [Suspect]
     Active Substance: CLONAZEPAM
     Indication: PANIC ATTACK
     Route: 065
  2. SINGULAIR [Concomitant]
     Active Substance: MONTELUKAST SODIUM
  3. COREG [Concomitant]
     Active Substance: CARVEDILOL
  4. TRAMADOL. [Concomitant]
     Active Substance: TRAMADOL
  5. ZOCOR [Concomitant]
     Active Substance: SIMVASTATIN
  6. NEXIUM [Concomitant]
     Active Substance: ESOMEPRAZOLE MAGNESIUM

REACTIONS (5)
  - Burn oral cavity [Unknown]
  - Product quality issue [Unknown]
  - Oral discomfort [Unknown]
  - Dysgeusia [Unknown]
  - Eye swelling [Unknown]
